FAERS Safety Report 7322602-5 (Version None)
Quarter: 2011Q1

REPORT INFORMATION
  Report Type: 
  Country: None (occurrence: None)
  Receive Date: 20110301
  Receipt Date: 20110225
  Transmission Date: 20110831
  Serious: No
  Sender: FDA-Public Use
  Company Number: US-PFIZER INC-2011041962

PATIENT
  Sex: Female
  Weight: 59.41 kg

DRUGS (2)
  1. ADVIL LIQUI-GELS [Suspect]
     Indication: MUSCULOSKELETAL PAIN
     Dosage: 200 MG, 2X/DAY
     Route: 048
  2. LIPITOR [Concomitant]
     Indication: HYPERTENSION
     Dosage: 20 MG, UNK

REACTIONS (3)
  - ENERGY INCREASED [None]
  - POOR QUALITY SLEEP [None]
  - INSOMNIA [None]
